FAERS Safety Report 15248020 (Version 1)
Quarter: 2018Q3

REPORT INFORMATION
  Report Type: Report from Study
  Country: BE (occurrence: BE)
  Receive Date: 20180807
  Receipt Date: 20180807
  Transmission Date: 20181010
  Serious: Yes (Hospitalization, Other)
  Sender: FDA-Public Use
  Company Number: BE-ROCHE-2163451

PATIENT
  Sex: Female

DRUGS (4)
  1. TRASTUZUMAB. [Suspect]
     Active Substance: TRASTUZUMAB
     Indication: BREAST CANCER
     Route: 065
  2. CYCLOPHOSPHAMIDE. [Suspect]
     Active Substance: CYCLOPHOSPHAMIDE
     Indication: BREAST CANCER
     Route: 065
  3. PEGFILGRASTIM [Concomitant]
     Active Substance: PEGFILGRASTIM
     Indication: PROPHYLAXIS
     Route: 065
  4. DOCETAXEL. [Suspect]
     Active Substance: DOCETAXEL
     Indication: BREAST CANCER
     Route: 065

REACTIONS (25)
  - Anaemia [Unknown]
  - Diarrhoea [Unknown]
  - Decreased appetite [Unknown]
  - Myalgia [Unknown]
  - Oedema [Unknown]
  - Thrombocytopenia [Unknown]
  - Dyspepsia [Unknown]
  - Liver function test increased [Unknown]
  - Vomiting [Unknown]
  - Rash [Unknown]
  - Stomatitis [Unknown]
  - Dysgeusia [Unknown]
  - Abdominal pain [Unknown]
  - Febrile neutropenia [Unknown]
  - Nausea [Unknown]
  - Bone pain [Unknown]
  - Skin reaction [Unknown]
  - Neuropathy peripheral [Unknown]
  - Gastrointestinal toxicity [Unknown]
  - Neutropenia [Unknown]
  - Constipation [Unknown]
  - Migraine [Unknown]
  - Pulmonary embolism [Unknown]
  - Infection [Unknown]
  - Fatigue [Unknown]
